FAERS Safety Report 17602039 (Version 2)
Quarter: 2020Q1

REPORT INFORMATION
  Report Type: Spontaneous
  Country: US (occurrence: US)
  Receive Date: 20200331
  Receipt Date: 20200331
  Transmission Date: 20200409
  Serious: Yes (Other)
  Sender: FDA-Public Use
  Company Number: US-CIPLA LTD.-2020US02095

PATIENT

DRUGS (6)
  1. TYLENOL [Concomitant]
     Active Substance: ACETAMINOPHEN
     Indication: HEADACHE
  2. ROSUVASTATIN. [Concomitant]
     Active Substance: ROSUVASTATIN
     Indication: BLOOD CHOLESTEROL INCREASED
     Dosage: 20 MILLIGRAM, QD (ONCE A DAY), SINCE 20 YEARS
     Route: 065
  3. LEVOTHYROXINE. [Concomitant]
     Active Substance: LEVOTHYROXINE
     Indication: THYROID DISORDER
     Dosage: 0.05 MILLIGRAM, QD (ONCE A DAY)
     Route: 065
     Dates: start: 1987
  4. VITAMIN D NOS [Concomitant]
     Active Substance: VITAMIN D NOS
     Indication: VITAMIN SUPPLEMENTATION
     Dosage: 5000 MILLIGRAM, QD (ONCE A DAY), FOR A COUPLE OF YEARS
     Route: 065
  5. GABAPENTIN. [Suspect]
     Active Substance: GABAPENTIN
     Indication: HERPES ZOSTER
     Dosage: 300 MILLIGRAM, BID (IN EARLY MORNING AND NIGHT)
     Route: 048
     Dates: start: 20191128
  6. TYLENOL [Concomitant]
     Active Substance: ACETAMINOPHEN
     Indication: ARTHRALGIA
     Dosage: 200 MG, PRN, SINCE 30 YEARS
     Route: 065

REACTIONS (9)
  - Condition aggravated [Unknown]
  - Feeling abnormal [Unknown]
  - Coordination abnormal [Unknown]
  - Photopsia [Not Recovered/Not Resolved]
  - Muscular weakness [Unknown]
  - Herpes zoster [Unknown]
  - Balance disorder [Unknown]
  - Inappropriate schedule of product administration [Unknown]
  - Impaired driving ability [Unknown]

NARRATIVE: CASE EVENT DATE: 202002
